FAERS Safety Report 6413332-2 (Version None)
Quarter: 2009Q4

REPORT INFORMATION
  Report Type: 
  Country: None (occurrence: None)
  Receive Date: 20091026
  Receipt Date: 20091015
  Transmission Date: 20100525
  Serious: Yes (Hospitalization)
  Sender: FDA-Public Use
  Company Number: US-BRISTOL-MYERS SQUIBB COMPANY-14818256

PATIENT
  Age: 73 Year
  Sex: Male
  Weight: 81 kg

DRUGS (1)
  1. SPRYCEL [Suspect]
     Indication: SALIVARY GLAND CANCER
     Dosage: START:26AUG09,INTERRUPTED ON 29AUG09. RESTARTED ON 05SEP09, 70MG BID. STOPPED ON 14SEP09. CYCLE: 1.
     Route: 048
     Dates: start: 20090826, end: 20090914

REACTIONS (1)
  - BLINDNESS [None]
